FAERS Safety Report 8759864 (Version 1)
Quarter: 2012Q4

REPORT INFORMATION
  Report Type: 
  Country: JP (occurrence: JP)
  Receive Date: 20120829
  Receipt Date: 20120829
  Transmission Date: 20130627
  Serious: Yes (Hospitalization)
  Sender: FDA-Public Use
  Company Number: JP-ABBOTT-12P-087-0974124-00

PATIENT
  Age: 64 Year
  Sex: Female

DRUGS (3)
  1. AKINETON INJECTION [Suspect]
     Indication: MANIA
     Dosage: 5 mg
     Route: 030
     Dates: start: 20120615, end: 20120615
  2. SERENACE [Suspect]
     Indication: MANIA
     Dosage: 5 mg
     Route: 030
     Dates: start: 20120615, end: 20120615
  3. RISPERDAL [Concomitant]
     Indication: MANIA
     Dosage: 0.5 mg/day
     Route: 048
     Dates: start: 20120616, end: 20120616

REACTIONS (2)
  - Blood pressure decreased [Recovering/Resolving]
  - Depressed level of consciousness [Recovering/Resolving]
